FAERS Safety Report 13646077 (Version 2)
Quarter: 2017Q3

REPORT INFORMATION
  Report Type: Spontaneous
  Country: US (occurrence: US)
  Receive Date: 20170613
  Receipt Date: 20170718
  Transmission Date: 20171127
  Serious: No
  Sender: FDA-Public Use
  Company Number: US-ASTRAZENECA-2017SE60869

PATIENT
  Age: 17820 Day
  Sex: Male
  Weight: 154.2 kg

DRUGS (2)
  1. BYDUREON [Suspect]
     Active Substance: EXENATIDE
     Indication: GLYCOSYLATED HAEMOGLOBIN DECREASED
     Dosage: ONCE A WEEK
     Route: 058
     Dates: start: 20170514
  2. LANTUS [Concomitant]
     Active Substance: INSULIN GLARGINE
     Indication: DIABETES MELLITUS
     Dates: start: 20170514

REACTIONS (8)
  - Vomiting [Unknown]
  - Device leakage [Unknown]
  - Injection site pain [Unknown]
  - Injection site pruritus [Unknown]
  - Dizziness [Unknown]
  - Nausea [Recovering/Resolving]
  - Fatigue [Unknown]
  - Depressed mood [Unknown]

NARRATIVE: CASE EVENT DATE: 20170514
